FAERS Safety Report 25329969 (Version 1)
Quarter: 2025Q2

REPORT INFORMATION
  Report Type: Spontaneous
  Country: US (occurrence: US)
  Receive Date: 20250519
  Receipt Date: 20250519
  Transmission Date: 20250716
  Serious: No
  Sender: ROCHE
  Company Number: US-ROCHE-10000283795

PATIENT
  Sex: Female

DRUGS (2)
  1. XOLAIR [Suspect]
     Active Substance: OMALIZUMAB
     Indication: Chronic obstructive pulmonary disease
     Dosage: STRENGTH: 150 MG/ML
     Route: 058
     Dates: start: 202007
  2. XOLAIR [Suspect]
     Active Substance: OMALIZUMAB
     Indication: Asthma

REACTIONS (1)
  - Rectal haemorrhage [Unknown]
